FAERS Safety Report 18086023 (Version 2)
Quarter: 2020Q3

REPORT INFORMATION
  Report Type: Spontaneous
  Country: US (occurrence: US)
  Receive Date: 20200729
  Receipt Date: 20200803
  Transmission Date: 20201103
  Serious: Yes (Other)
  Sender: FDA-Public Use
  Company Number: US-PFIZER INC-2020286902

PATIENT
  Age: 57 Year
  Sex: Male

DRUGS (8)
  1. MIRALAX [Suspect]
     Active Substance: POLYETHYLENE GLYCOL 3350
     Indication: LAXATIVE SUPPORTIVE CARE
     Dosage: UNK
  2. ESCITALOPRAM [Suspect]
     Active Substance: ESCITALOPRAM OXALATE
     Indication: DEPRESSION
     Dosage: UNK
  3. BISACODYL. [Suspect]
     Active Substance: BISACODYL
     Indication: LAXATIVE SUPPORTIVE CARE
     Dosage: UNK (RECTAL SUPPOSITORY)
     Route: 054
  4. METOCLOPRAMIDE HCL [Suspect]
     Active Substance: METOCLOPRAMIDE HYDROCHLORIDE
     Indication: GASTROINTESTINAL MOTILITY DISORDER
     Dosage: UNK
  5. DOCUSATE;SENNA [Suspect]
     Active Substance: DOCUSATE\SENNOSIDES
     Indication: LAXATIVE SUPPORTIVE CARE
     Dosage: UNK
  6. DOCUSATE;SENNA [Suspect]
     Active Substance: DOCUSATE\SENNOSIDES
     Indication: FAECES HARD
  7. BISACODYL. [Suspect]
     Active Substance: BISACODYL
     Indication: FAECES HARD
  8. TRAMADOL. [Suspect]
     Active Substance: TRAMADOL
     Indication: PAIN MANAGEMENT
     Dosage: UNK (AS NEEDED)

REACTIONS (2)
  - Diarrhoea [Recovered/Resolved]
  - Serotonin syndrome [Unknown]
